FAERS Safety Report 15183223 (Version 2)
Quarter: 2018Q4

REPORT INFORMATION
  Report Type: Spontaneous
  Country: US (occurrence: US)
  Receive Date: 20180723
  Receipt Date: 20181205
  Transmission Date: 20190204
  Serious: Yes (Death)
  Sender: FDA-Public Use
  Company Number: US-PFIZER INC-2018293454

PATIENT
  Age: 3 Year
  Sex: Male
  Weight: 12.2 kg

DRUGS (5)
  1. EPHEDRINE. [Suspect]
     Active Substance: EPHEDRINE
     Indication: BRONCHITIS
     Dosage: TOTAL OF 11/4 GRAINS OR 75 MG
  2. AMINOPHYLLINE. [Suspect]
     Active Substance: AMINOPHYLLINE
     Indication: BRONCHITIS
     Dosage: 210 MG (ONE SUPPOSITORY OF 3 1/2 GRAINS TOTAL)
     Route: 054
  3. ADRENALIN [Concomitant]
     Active Substance: EPINEPHRINE
     Indication: BRONCHITIS
     Dosage: UNK
  4. PROCAINE PENICILLIN [Concomitant]
     Active Substance: PENICILLIN G PROCAINE
     Dosage: 300000 IU, (300,000 UNITS OF AQUEOUS PROCAINE PENICILLIN)
     Route: 030
  5. AMINOPHYLLINE. [Suspect]
     Active Substance: AMINOPHYLLINE
     Indication: BRONCHITIS
     Dosage: 210 MG (THREE INJECTIONS TOTAL OF 3 1/2 GRAINS)
     Route: 030

REACTIONS (2)
  - Toxicity to various agents [Fatal]
  - Incorrect route of product administration [Unknown]
